FAERS Safety Report 23178949 (Version 9)
Quarter: 2024Q1

REPORT INFORMATION
  Report Type: Spontaneous
  Country: CA (occurrence: CA)
  Receive Date: 20231113
  Receipt Date: 20240202
  Transmission Date: 20240410
  Serious: Yes (Other)
  Sender: FDA-Public Use
  Company Number: CA-PFIZER INC-PV202300038017

PATIENT
  Age: 60 Year
  Sex: Male
  Weight: 130.7 kg

DRUGS (35)
  1. ZIRABEV [Suspect]
     Active Substance: BEVACIZUMAB-BVZR
     Dosage: UNK, VIA PORT A CATH RT CHEST
     Route: 042
     Dates: start: 20230224
  2. ZIRABEV [Suspect]
     Active Substance: BEVACIZUMAB-BVZR
     Dosage: 666 MG
     Route: 042
     Dates: start: 20230310
  3. ZIRABEV [Suspect]
     Active Substance: BEVACIZUMAB-BVZR
     Dosage: 666 MG
     Route: 042
     Dates: start: 20230310
  4. ZIRABEV [Suspect]
     Active Substance: BEVACIZUMAB-BVZR
     Dosage: 666 MG, EVERY 2 WEEKS
     Route: 042
     Dates: start: 20230324
  5. ZIRABEV [Suspect]
     Active Substance: BEVACIZUMAB-BVZR
     Dosage: 666 MG, EVERY 2 WEEKS
     Route: 042
     Dates: start: 20230324
  6. ZIRABEV [Suspect]
     Active Substance: BEVACIZUMAB-BVZR
     Dosage: 666 MG, EVERY 2 WEEKS
     Route: 042
     Dates: start: 20230414
  7. ZIRABEV [Suspect]
     Active Substance: BEVACIZUMAB-BVZR
     Dosage: 666 MG, EVERY 2 WEEKS, VIA PORT A CATH
     Route: 042
     Dates: start: 20230428
  8. ZIRABEV [Suspect]
     Active Substance: BEVACIZUMAB-BVZR
     Dosage: 666 MG, EVERY 2 WEEKS, VIA PORT A CATH
     Route: 042
     Dates: start: 20230428
  9. ZIRABEV [Suspect]
     Active Substance: BEVACIZUMAB-BVZR
     Dosage: 666 MG
     Route: 042
     Dates: start: 20230512
  10. ZIRABEV [Suspect]
     Active Substance: BEVACIZUMAB-BVZR
     Dosage: 666 MG
     Route: 042
     Dates: start: 20230512
  11. ZIRABEV [Suspect]
     Active Substance: BEVACIZUMAB-BVZR
     Dosage: 666 MG, EVERY 2 WEEKS
     Route: 042
     Dates: start: 20230526
  12. ZIRABEV [Suspect]
     Active Substance: BEVACIZUMAB-BVZR
     Dosage: 666 MG, EVERY 2 WEEKS
     Route: 042
     Dates: start: 20230616
  13. ZIRABEV [Suspect]
     Active Substance: BEVACIZUMAB-BVZR
     Dosage: 666 MG
     Route: 042
     Dates: start: 20230629
  14. ZIRABEV [Suspect]
     Active Substance: BEVACIZUMAB-BVZR
     Dosage: 666 MG
     Route: 042
     Dates: start: 20230629
  15. ZIRABEV [Suspect]
     Active Substance: BEVACIZUMAB-BVZR
     Dosage: 666 MG
     Route: 042
     Dates: start: 20230714
  16. ZIRABEV [Suspect]
     Active Substance: BEVACIZUMAB-BVZR
     Dosage: 666 MG
     Route: 042
     Dates: start: 20230728
  17. ZIRABEV [Suspect]
     Active Substance: BEVACIZUMAB-BVZR
     Dosage: 666 MG
     Route: 042
     Dates: start: 20230811
  18. ZIRABEV [Suspect]
     Active Substance: BEVACIZUMAB-BVZR
     Dosage: 674 MG
     Route: 042
     Dates: start: 20230825
  19. ZIRABEV [Suspect]
     Active Substance: BEVACIZUMAB-BVZR
     Dosage: 674 MG
     Route: 042
     Dates: start: 20230825
  20. ZIRABEV [Suspect]
     Active Substance: BEVACIZUMAB-BVZR
     Dosage: 674 MG
     Route: 042
     Dates: start: 20230907
  21. ZIRABEV [Suspect]
     Active Substance: BEVACIZUMAB-BVZR
     Dosage: 674 MG
     Route: 042
     Dates: start: 20230907
  22. ZIRABEV [Suspect]
     Active Substance: BEVACIZUMAB-BVZR
     Dosage: 674 MG
     Route: 042
     Dates: start: 20230928
  23. ZIRABEV [Suspect]
     Active Substance: BEVACIZUMAB-BVZR
     Dosage: 674 MG
     Route: 042
     Dates: start: 20230928
  24. ZIRABEV [Suspect]
     Active Substance: BEVACIZUMAB-BVZR
     Dosage: 674 MG
     Route: 042
     Dates: start: 20231012
  25. ZIRABEV [Suspect]
     Active Substance: BEVACIZUMAB-BVZR
     Dosage: 558 MG, EVERY 2 WEEKS
     Route: 042
  26. ZIRABEV [Suspect]
     Active Substance: BEVACIZUMAB-BVZR
     Dosage: 558 MG, EVERY 2 WEEKS
     Route: 042
     Dates: start: 20231102
  27. ZIRABEV [Suspect]
     Active Substance: BEVACIZUMAB-BVZR
     Dosage: 558 MG, EVERY 2 WEEKS
     Route: 042
     Dates: start: 20231102
  28. ZIRABEV [Suspect]
     Active Substance: BEVACIZUMAB-BVZR
     Dosage: 558 MG, EVERY 2 WEEKS
     Route: 042
     Dates: start: 20231123
  29. ZIRABEV [Suspect]
     Active Substance: BEVACIZUMAB-BVZR
     Dosage: 558 MG, EVERY 2 WEEKS
     Route: 042
     Dates: start: 20231220
  30. ZIRABEV [Suspect]
     Active Substance: BEVACIZUMAB-BVZR
     Dosage: 558 MG, EVERY 2 WEEKS
     Route: 042
     Dates: start: 20231220
  31. ZIRABEV [Suspect]
     Active Substance: BEVACIZUMAB-BVZR
     Dosage: 558 MG
     Route: 042
     Dates: start: 20240102
  32. ZIRABEV [Suspect]
     Active Substance: BEVACIZUMAB-BVZR
     Dosage: 558 MG
     Route: 042
     Dates: start: 20240102
  33. ZIRABEV [Suspect]
     Active Substance: BEVACIZUMAB-BVZR
     Dosage: 558 MG
     Route: 042
     Dates: start: 20240116
  34. ZIRABEV [Suspect]
     Active Substance: BEVACIZUMAB-BVZR
     Dosage: 558 MG
     Route: 042
     Dates: start: 20240116
  35. LONSURF [Concomitant]
     Active Substance: TIPIRACIL HYDROCHLORIDE\TRIFLURIDINE
     Dosage: UNK

REACTIONS (14)
  - Weight decreased [Unknown]
  - Haemoglobin decreased [Recovering/Resolving]
  - Platelet count decreased [Not Recovered/Not Resolved]
  - Intracranial mass [Unknown]
  - Haemorrhage [Unknown]
  - Weight fluctuation [Unknown]
  - Blood pressure increased [Unknown]
  - Heart rate increased [Unknown]
  - Heart rate irregular [Unknown]
  - Nausea [Unknown]
  - Feeling abnormal [Unknown]
  - Memory impairment [Unknown]
  - Malaise [Unknown]
  - Inappropriate schedule of product administration [Unknown]

NARRATIVE: CASE EVENT DATE: 20230101
